FAERS Safety Report 9629730 (Version 3)
Quarter: 2013Q4

REPORT INFORMATION
  Report Type: Spontaneous
  Country: CA (occurrence: CA)
  Receive Date: 20131017
  Receipt Date: 20131220
  Transmission Date: 20140711
  Serious: Yes (Hospitalization)
  Sender: FDA-Public Use
  Company Number: CA-ROCHE-1290099

PATIENT
  Age: 6 Year
  Sex: Female

DRUGS (4)
  1. RITUXAN [Suspect]
     Indication: FOCAL SEGMENTAL GLOMERULOSCLEROSIS
     Route: 042
     Dates: start: 20130905
  2. RITUXAN [Suspect]
     Route: 042
     Dates: start: 20130912
  3. LOSARTAN [Concomitant]
  4. CYCLOSPORINE [Concomitant]

REACTIONS (4)
  - Dyspnoea [Recovered/Resolved]
  - Vomiting [Recovered/Resolved]
  - Oxygen saturation decreased [Recovered/Resolved]
  - Pyrexia [Recovered/Resolved]
